FAERS Safety Report 4504768-5 (Version None)
Quarter: 2004Q4

REPORT INFORMATION
  Report Type: 
  Country: None (occurrence: None)
  Receive Date: 20041118
  Receipt Date: 20041110
  Transmission Date: 20050328
  Serious: Yes (Death)
  Sender: FDA-Public Use
  Company Number: CO-MERCK-0411COL00006

PATIENT
  Age: 52 Year
  Sex: Male

DRUGS (2)
  1. VIOXX [Suspect]
     Indication: HEADACHE
     Route: 048
     Dates: start: 19980101, end: 20020101
  2. VIOXX [Suspect]
     Indication: MYALGIA
     Route: 048
     Dates: start: 19980101, end: 20020101

REACTIONS (1)
  - MYOCARDIAL INFARCTION [None]
